FAERS Safety Report 10527436 (Version 3)
Quarter: 2015Q1

REPORT INFORMATION
  Report Type: Spontaneous
  Country: JP (occurrence: JP)
  Receive Date: 20141020
  Receipt Date: 20150119
  Transmission Date: 20150720
  Serious: Yes (Death, Other)
  Sender: FDA-Public Use
  Company Number: JP-MALLINCKRODT-T201402138

PATIENT
  Age: 70 Year
  Sex: Female
  Weight: 39 kg

DRUGS (9)
  1. LOXONIN [Concomitant]
     Active Substance: LOXOPROFEN SODIUM
     Dosage: 180 MG, UNK
     Route: 048
     Dates: end: 20140623
  2. ABSTRAL [Concomitant]
     Active Substance: FENTANYL CITRATE
     Dosage: 0.1 MG, PRN
     Route: 060
     Dates: start: 20140426
  3. SEROQUEL [Concomitant]
     Active Substance: QUETIAPINE FUMARATE
     Indication: INSOMNIA
     Dosage: 25 MG, QD
     Route: 048
     Dates: start: 20140426, end: 20140426
  4. FENTANYL. [Concomitant]
     Active Substance: FENTANYL
     Dosage: 0.05 MG, PRN
     Route: 051
     Dates: start: 20140421, end: 20140425
  5. LINTON                             /00027401/ [Concomitant]
     Dosage: 0.75 MG, UNK
     Route: 048
     Dates: start: 20140429, end: 20140623
  6. TAKEPRON [Concomitant]
     Active Substance: LANSOPRAZOLE
     Dosage: 15 MG, UNK
     Route: 048
     Dates: end: 20140623
  7. MAGNESIUM SULFATE. [Concomitant]
     Active Substance: MAGNESIUM SULFATE
     Dosage: 2.46 MG, UNK
     Route: 051
     Dates: start: 20140422, end: 20140422
  8. METHADONE [Suspect]
     Active Substance: METHADONE HYDROCHLORIDE
     Dosage: 5 MG, (10 MG DAILY DOSE)
     Route: 048
     Dates: start: 20140429, end: 20140623
  9. METHADONE [Suspect]
     Active Substance: METHADONE HYDROCHLORIDE
     Indication: CANCER PAIN
     Dosage: 5 MG, (15 MG DAILY DOSE)
     Route: 048
     Dates: start: 20140422, end: 20140428

REACTIONS (3)
  - Cervix carcinoma [Fatal]
  - Delirium [Recovered/Resolved]
  - Insomnia [Recovering/Resolving]

NARRATIVE: CASE EVENT DATE: 20140426
